FAERS Safety Report 7221657-6 (Version None)
Quarter: 2011Q1

REPORT INFORMATION
  Report Type: 
  Country: None (occurrence: None)
  Receive Date: 20110112
  Receipt Date: 20110105
  Transmission Date: 20110831
  Serious: Yes (Hospitalization)
  Sender: FDA-Public Use
  Company Number: US-JNJCH-2011000541

PATIENT
  Age: 26 Year
  Sex: Female

DRUGS (3)
  1. ALL OTHER NON-THERAPEUTIC PRODUCTS [Suspect]
     Indication: PRODUCT USED FOR UNKNOWN INDICATION
     Dosage: TEXT:SEVERAL GLASSES DAILY
     Route: 048
  2. CALCIUM CARBONATE (UNSPECIFIED) [Suspect]
     Indication: ANTACID THERAPY
     Dosage: TEXT:EIGHT TO NINE TABLETS DAILY
     Route: 048
  3. PRENATAL VITAMINS [Suspect]
     Indication: PRENATAL CARE
     Dosage: TEXT:UNKNOWN
     Route: 048

REACTIONS (1)
  - MILK-ALKALI SYNDROME [None]
